FAERS Safety Report 25570808 (Version 1)
Quarter: 2025Q3

REPORT INFORMATION
  Report Type: Spontaneous
  Country: GB (occurrence: GB)
  Receive Date: 20250717
  Receipt Date: 20250717
  Transmission Date: 20251020
  Serious: Yes (Hospitalization)
  Sender: ACCORD
  Company Number: GB-Accord-494172

PATIENT
  Age: 76 Year
  Sex: Female

DRUGS (4)
  1. DONEPEZIL HYDROCHLORIDE [Suspect]
     Active Substance: DONEPEZIL HYDROCHLORIDE
     Indication: Dementia Alzheimer^s type
     Dates: start: 2020, end: 2023
  2. LEVETIRACETAM [Suspect]
     Active Substance: LEVETIRACETAM
     Indication: Seizure
     Dates: start: 2017, end: 2023
  3. RISPERIDONE [Concomitant]
     Active Substance: RISPERIDONE
     Indication: Dementia Alzheimer^s type
     Dates: start: 2020
  4. RISPERIDONE [Concomitant]
     Active Substance: RISPERIDONE
     Indication: Dementia Alzheimer^s type
     Dates: start: 2020

REACTIONS (1)
  - Delusion [Recovered/Resolved]

NARRATIVE: CASE EVENT DATE: 20230101
